FAERS Safety Report 13401374 (Version 2)
Quarter: 2017Q2

REPORT INFORMATION
  Report Type: Spontaneous
  Country: IL (occurrence: IL)
  Receive Date: 20170404
  Receipt Date: 20170407
  Transmission Date: 20170830
  Serious: Yes (Death)
  Sender: FDA-Public Use
  Company Number: IL-TEVA-753449ACC

PATIENT
  Age: 67 Year
  Sex: Female
  Weight: 80 kg

DRUGS (8)
  1. PALOXI 0.25 M [Concomitant]
     Indication: PRODUCT USED FOR UNKNOWN INDICATION
     Dosage: 150ML SALINE, 1 DAY
     Route: 042
  2. CARBOPLATIN. [Suspect]
     Active Substance: CARBOPLATIN
     Indication: OVARIAN CANCER
     Dosage: PRODUCT DOSE 150MG/15ML - TOTAL DOSE GIVEN 510MG
     Dates: end: 20170321
  3. AHISTON TABLETS [Suspect]
     Active Substance: CHLORPHENIRAMINE MALEATE
     Dosage: DOSAGE : 4MG (2 TAB) - 1 DAY-1.5 HOUR
     Dates: end: 20170321
  4. DEXACORT [Concomitant]
     Active Substance: DEXAMETHASONE SODIUM PHOSPHATE
     Indication: PRODUCT USED FOR UNKNOWN INDICATION
     Dosage: DOSAGE: 20MG
     Route: 042
  5. EBETAXEL 30MG/5M [Suspect]
     Active Substance: PACLITAXEL
     Indication: OVARIAN CANCER
     Dosage: TOTAL DOSE GIVEN 239 MG
     Dates: start: 20170321
  6. ZANTAC [Concomitant]
     Active Substance: RANITIDINE HYDROCHLORIDE
     Indication: PRODUCT USED FOR UNKNOWN INDICATION
     Dosage: DOSAGE: 50MG , 150ML SALINE
     Route: 042
  7. PRAMIN TABLETS [Concomitant]
     Dosage: DOSAGE : 10MG X 4
  8. CARBOPLATIN. [Suspect]
     Active Substance: CARBOPLATIN
     Dosage: PRODUCT DOSE 450MG/45ML - TOTAL DOSE GIVEN 510MG

REACTIONS (2)
  - Cardiac arrest [Fatal]
  - Fall [Recovered/Resolved]

NARRATIVE: CASE EVENT DATE: 20170321
